FAERS Safety Report 7739692-8 (Version None)
Quarter: 2011Q3

REPORT INFORMATION
  Report Type: 
  Country: None (occurrence: None)
  Receive Date: 20110906
  Receipt Date: 20110822
  Transmission Date: 20111222
  Serious: Yes (Other)
  Sender: FDA-Public Use
  Company Number: DSJ-2011-18455

PATIENT
  Age: 71 Year
  Sex: Female

DRUGS (4)
  1. BENICAR [Suspect]
     Indication: HYPERTENSION
     Dosage: 20/5 MG (1 IN 1 D), PER ORAL
     Route: 048
     Dates: start: 20080101
  2. SIMVASTATIN [Concomitant]
  3. LEVOTHYROXINE SODIUM [Concomitant]
  4. CALCIUM/VITAMIN D [Concomitant]

REACTIONS (1)
  - CATARACT OPERATION [None]
